FAERS Safety Report 6728466-2 (Version None)
Quarter: 2010Q2

REPORT INFORMATION
  Report Type: 
  Country: None (occurrence: None)
  Receive Date: 20100517
  Receipt Date: 20100503
  Transmission Date: 20101027
  Serious: Yes (Life-Threatening)
  Sender: FDA-Public Use
  Company Number: FR-MYLANLABS-2010S1007684

PATIENT
  Age: 27 Year
  Sex: Male

DRUGS (3)
  1. ARIPIPRAZOLE [Interacting]
     Indication: SCHIZOPHRENIA, PARANOID TYPE
     Dosage: GRADUALLY INCREASED OVER 15-DAY PERIOD TO 30 MG/DAY
     Route: 065
  2. ARIPIPRAZOLE [Interacting]
     Dosage: 30 MG/DAY
     Route: 065
  3. CLOZAPINE [Suspect]
     Indication: SCHIZOPHRENIA, PARANOID TYPE
     Dosage: 300 MG/DAY (INCREASED TO THIS DOSAGE AFTER 1 MONTH; INITIAL DOSAGE N/S)
     Route: 065
     Dates: start: 20081101

REACTIONS (2)
  - DRUG INTERACTION [None]
  - NEUROLEPTIC MALIGNANT SYNDROME [None]
